FAERS Safety Report 9832556 (Version 2)
Quarter: 2014Q1

REPORT INFORMATION
  Report Type: Spontaneous
  Country: US (occurrence: US)
  Receive Date: 20140121
  Receipt Date: 20140131
  Transmission Date: 20141002
  Serious: Yes (Hospitalization, Other)
  Sender: FDA-Public Use
  Company Number: US-ASTRAZENECA-2014SE03109

PATIENT
  Age: 55 Year
  Sex: Male
  Weight: 95.3 kg

DRUGS (6)
  1. SEROQUEL [Suspect]
     Indication: SLEEP DISORDER
     Route: 048
     Dates: start: 201311
  2. SEROQUEL [Suspect]
     Indication: SLEEP DISORDER
     Dosage: 150 MG PRN, AT BEDTIME
     Route: 048
     Dates: start: 201311
  3. SEROQUEL [Suspect]
     Indication: SLEEP DISORDER
     Route: 048
     Dates: start: 201312
  4. DIFFERENT PAIN MEDICATIONS [Concomitant]
     Indication: MUSCULOSKELETAL DISCOMFORT
     Dosage: PRN
     Route: 048
  5. DIFFERENT PAIN MEDICATIONS [Concomitant]
     Indication: MUSCULOSKELETAL DISCOMFORT
     Dosage: PRN
     Route: 048
  6. INHALER [Concomitant]
     Indication: ASTHMA
     Route: 055

REACTIONS (11)
  - Loss of consciousness [Recovered/Resolved]
  - Road traffic accident [Recovered/Resolved]
  - Muscle injury [Recovered/Resolved]
  - Neck pain [Recovered/Resolved]
  - Insomnia [Unknown]
  - Dry eye [Unknown]
  - Back pain [Unknown]
  - Dry mouth [Not Recovered/Not Resolved]
  - Intentional drug misuse [Not Recovered/Not Resolved]
  - Drug ineffective for unapproved indication [Not Recovered/Not Resolved]
  - Off label use [Not Recovered/Not Resolved]
